FAERS Safety Report 7361696-8 (Version None)
Quarter: 2011Q1

REPORT INFORMATION
  Report Type: 
  Country: None (occurrence: None)
  Receive Date: 20110318
  Receipt Date: 20110308
  Transmission Date: 20110831
  Serious: Yes (Hospitalization)
  Sender: FDA-Public Use
  Company Number: US-JNJFOC-20090202752

PATIENT
  Sex: Female
  Weight: 52.8 kg

DRUGS (5)
  1. CIPROFLOXACIN [Concomitant]
  2. REMICADE [Suspect]
     Indication: INFLAMMATORY BOWEL DISEASE
     Route: 042
  3. REMICADE [Suspect]
     Route: 042
  4. REMICADE [Suspect]
     Route: 042
  5. CERTOLIZUMAB [Concomitant]

REACTIONS (2)
  - PYODERMA GANGRENOSUM [None]
  - STAPHYLOCOCCAL INFECTION [None]
